FAERS Safety Report 16087998 (Version 5)
Quarter: 2019Q2

REPORT INFORMATION
  Report Type: Report from Study
  Country: US (occurrence: US)
  Receive Date: 20190319
  Receipt Date: 20190513
  Transmission Date: 20190711
  Serious: Yes (Other)
  Sender: FDA-Public Use
  Company Number: US-ROCHE-2280784

PATIENT
  Age: 64 Year
  Sex: Female
  Weight: 48.1 kg

DRUGS (5)
  1. CYMBALTA [Concomitant]
     Active Substance: DULOXETINE HYDROCHLORIDE
  2. SYNTHROID [Concomitant]
     Active Substance: LEVOTHYROXINE SODIUM
  3. OCREVUS [Suspect]
     Active Substance: OCRELIZUMAB
     Indication: RELAPSING MULTIPLE SCLEROSIS
     Dosage: NEXT INFUSION: 15/AUG/2018
     Route: 042
     Dates: start: 20180801
  4. BACLOFEN. [Concomitant]
     Active Substance: BACLOFEN
  5. TROSPIUM [Concomitant]
     Active Substance: TROSPIUM

REACTIONS (2)
  - Cystitis [Unknown]
  - Urinary tract infection [Not Recovered/Not Resolved]

NARRATIVE: CASE EVENT DATE: 20181116
